FAERS Safety Report 7364359-8 (Version None)
Quarter: 2011Q1

REPORT INFORMATION
  Report Type: 
  Country: None (occurrence: None)
  Receive Date: 20110321
  Receipt Date: 20110316
  Transmission Date: 20110831
  Serious: Yes (Hospitalization)
  Sender: FDA-Public Use
  Company Number: CA-ABBOTT-11P-028-0712344-00

PATIENT
  Sex: Female

DRUGS (2)
  1. KALETRA [Suspect]
     Indication: ANTIRETROVIRAL THERAPY
     Dosage: TWICE DAILY, DAILY DOSE: 800MG/200MG
     Route: 048
     Dates: start: 20010701
  2. KALETRA [Suspect]
     Indication: HIV INFECTION

REACTIONS (3)
  - PSYCHOTIC DISORDER [None]
  - SUICIDE ATTEMPT [None]
  - MEMORY IMPAIRMENT [None]
